FAERS Safety Report 5779964-X (Version None)
Quarter: 2008Q2

REPORT INFORMATION
  Report Type: 
  Country: None (occurrence: None)
  Receive Date: 20080620
  Receipt Date: 20080612
  Transmission Date: 20081010
  Serious: Yes (Other)
  Sender: FDA-Public Use
  Company Number: DE-RANBAXY-2008RR-15932

PATIENT

DRUGS (14)
  1. SIMVA BASICS A 10MG [Suspect]
     Dosage: UNK
     Dates: start: 20070101
  2. INSUMAN RAPID [Concomitant]
  3. INSUMAN BASIC [Concomitant]
  4. ASPIRIN [Concomitant]
  5. BISOPROLOL FUMARATE [Concomitant]
  6. AQUAPHOR [Concomitant]
  7. NORADRENALINE [Concomitant]
     Dosage: UNK
     Dates: start: 20070101
  8. METOPROLOL [Concomitant]
     Dosage: UNK
     Dates: start: 20070101
  9. RANITIDINE [Concomitant]
     Dosage: UNK
     Dates: start: 20070101
  10. FUROSEMIDE [Concomitant]
     Dosage: UNK
     Dates: start: 20070101
  11. TERFALGAN [Concomitant]
     Dosage: UNK
     Dates: start: 20070101
  12. INSULIN [Concomitant]
     Dosage: UNK
     Dates: start: 20070101
  13. PIRETRAMID [Concomitant]
     Dosage: UNK
     Dates: start: 20070101
  14. SODIUM POLYSTYRENE SULFONATE [Concomitant]
     Dosage: UNK
     Dates: start: 20070101

REACTIONS (1)
  - SCLERODERMA [None]
